FAERS Safety Report 4583968-2 (Version None)
Quarter: 2005Q1

REPORT INFORMATION
  Report Type: 
  Country: None (occurrence: None)
  Receive Date: 20050125
  Receipt Date: 20041105
  Transmission Date: 20050727
  Serious: No
  Sender: FDA-Public Use
  Company Number: USA041080920

PATIENT
  Age: 68 Year
  Sex: Female
  Weight: 40 kg

DRUGS (4)
  1. FORTEO [Suspect]
     Indication: OSTEOPOROSIS
     Dosage: 20 UG AT BEDTIME
     Dates: start: 20041010
  2. PLAVIX [Concomitant]
  3. ASPIRIN [Concomitant]
  4. LIDODERM (LIDOCAINE) [Concomitant]

REACTIONS (5)
  - BLOOD PRESSURE INCREASED [None]
  - HEART RATE INCREASED [None]
  - INJECTION SITE HAEMORRHAGE [None]
  - MEDICATION ERROR [None]
  - OVERDOSE [None]
